FAERS Safety Report 4563051-2 (Version None)
Quarter: 2005Q1

REPORT INFORMATION
  Report Type: 
  Country: None (occurrence: None)
  Receive Date: 20050125
  Receipt Date: 20040706
  Transmission Date: 20050727
  Serious: Yes (Death)
  Sender: FDA-Public Use
  Company Number: 8342

PATIENT
  Age: 59 Year
  Sex: Male

DRUGS (6)
  1. DAUNORUBICIN [Suspect]
     Indication: ACUTE PROMYELOCYTIC LEUKAEMIA
     Dates: end: 19990901
  2. MITOXANTRONE [Suspect]
     Indication: ACUTE PROMYELOCYTIC LEUKAEMIA
     Dates: end: 19990901
  3. CYTARABINE [Suspect]
     Indication: ACUTE PROMYELOCYTIC LEUKAEMIA
     Dates: end: 19990901
  4. ETOPOSIDE [Suspect]
     Indication: ACUTE PROMYELOCYTIC LEUKAEMIA
     Dates: end: 19990901
  5. MERCAPTOPURINE [Suspect]
     Indication: ACUTE PROMYELOCYTIC LEUKAEMIA
     Dates: end: 19990901
  6. VINDESINE [Suspect]
     Indication: ACUTE PROMYELOCYTIC LEUKAEMIA
     Dates: end: 19990901

REACTIONS (3)
  - CHRONIC MYELOID LEUKAEMIA [None]
  - LEUKAEMIA RECURRENT [None]
  - PNEUMONIA [None]
